FAERS Safety Report 5370916-0 (Version None)
Quarter: 2007Q2

REPORT INFORMATION
  Report Type: 
  Country: None (occurrence: None)
  Receive Date: 20070614
  Receipt Date: 20070330
  Transmission Date: 20071010
  Serious: No
  Sender: FDA-Public Use
  Company Number: BDI-009317

PATIENT
  Age: 50 Year
  Sex: Male
  Weight: 113.18 kg

DRUGS (1)
  1. MULTIHANCE [Suspect]
     Indication: NUCLEAR MAGNETIC RESONANCE IMAGING
     Dosage: 10 ML ONCE IV
     Route: 042
     Dates: start: 20070328, end: 20070328

REACTIONS (4)
  - DYSPNOEA [None]
  - HYPERTENSION [None]
  - PRURITUS [None]
  - THROAT TIGHTNESS [None]
